FAERS Safety Report 26072298 (Version 1)
Quarter: 2025Q4

REPORT INFORMATION
  Report Type: Spontaneous
  Country: CN (occurrence: CN)
  Receive Date: 20251120
  Receipt Date: 20251120
  Transmission Date: 20260118
  Serious: Yes (Other)
  Sender: NOVO NORDISK
  Company Number: CN-NOVOPROD-1568216

PATIENT
  Age: 73 Year
  Sex: Female

DRUGS (2)
  1. NOVORAPID [Suspect]
     Active Substance: INSULIN ASPART
     Indication: Type 2 diabetes mellitus
     Dosage: 16 IU, TID(16 U IN THE MORNING, NOON, AND EVENING EACH DAY)
     Dates: start: 202503
  2. INSULIN ASPART [Suspect]
     Active Substance: INSULIN ASPART
     Indication: Type 2 diabetes mellitus
     Dosage: 26 IU, TID(26U EACH IN THE MORNING, NOON, AND EVENING EVERY DAY)

REACTIONS (1)
  - Cerebral infarction [Unknown]
